FAERS Safety Report 8574886-3 (Version None)
Quarter: 2012Q2

REPORT INFORMATION
  Report Type: 
  Country: None (occurrence: None)
  Receive Date: 20120423
  Receipt Date: 20100326
  Transmission Date: 20120825
  Serious: Yes (Other)
  Sender: FDA-Public Use
  Company Number: PHEH2009US15331

PATIENT
  Age: 10 Year
  Sex: Male
  Weight: 52.8 kg

DRUGS (8)
  1. EXJADE [Suspect]
     Indication: CHELATION THERAPY
     Dosage: 750 MG, QD, ORAL 600 MG, QD, ORAL 500 MG, QD, ORAL
     Route: 048
     Dates: start: 20090428, end: 20100113
  2. EXJADE [Suspect]
     Indication: SERUM FERRITIN INCREASED
     Dosage: 750 MG, QD, ORAL 600 MG, QD, ORAL 500 MG, QD, ORAL
     Route: 048
     Dates: start: 20090428, end: 20100113
  3. EXJADE [Suspect]
     Indication: CHELATION THERAPY
     Dosage: 750 MG, QD, ORAL 600 MG, QD, ORAL 500 MG, QD, ORAL
     Route: 048
     Dates: start: 20071026, end: 20091007
  4. EXJADE [Suspect]
     Indication: SERUM FERRITIN INCREASED
     Dosage: 750 MG, QD, ORAL 600 MG, QD, ORAL 500 MG, QD, ORAL
     Route: 048
     Dates: start: 20071026, end: 20091007
  5. EXJADE [Suspect]
     Indication: CHELATION THERAPY
     Dosage: 750 MG, QD, ORAL 600 MG, QD, ORAL 500 MG, QD, ORAL
     Route: 048
     Dates: start: 20090604, end: 20091204
  6. EXJADE [Suspect]
     Indication: SERUM FERRITIN INCREASED
     Dosage: 750 MG, QD, ORAL 600 MG, QD, ORAL 500 MG, QD, ORAL
     Route: 048
     Dates: start: 20090604, end: 20091204
  7. EXJADE [Suspect]
     Indication: CHELATION THERAPY
     Dosage: 750 MG, QD, ORAL 600 MG, QD, ORAL 500 MG, QD, ORAL
     Route: 048
     Dates: start: 20060411, end: 20080415
  8. EXJADE [Suspect]
     Indication: SERUM FERRITIN INCREASED
     Dosage: 750 MG, QD, ORAL 600 MG, QD, ORAL 500 MG, QD, ORAL
     Route: 048
     Dates: start: 20060411, end: 20080415

REACTIONS (6)
  - SERUM FERRITIN INCREASED [None]
  - NAUSEA [None]
  - CONCOMITANT DISEASE PROGRESSION [None]
  - TIC [None]
  - VOMITING [None]
  - LIVER FUNCTION TEST ABNORMAL [None]
